FAERS Safety Report 5834558-2 (Version None)
Quarter: 2008Q3

REPORT INFORMATION
  Report Type: 
  Country: None (occurrence: None)
  Receive Date: 20080805
  Receipt Date: 20080724
  Transmission Date: 20090109
  Serious: Yes (Other)
  Sender: FDA-Public Use
  Company Number: CH-ELI_LILLY_AND_COMPANY-CH200805005143

PATIENT
  Age: 51 Year
  Sex: Female

DRUGS (6)
  1. CYMBALTA [Suspect]
     Indication: DEPRESSION
     Dosage: 60 MG, DAILY (1/D)
     Route: 048
     Dates: start: 20071201
  2. CYMBALTA [Suspect]
     Dosage: 30 MG, UNKNOWN
     Route: 048
  3. REMERON [Concomitant]
     Indication: DEPRESSION
     Dosage: 7.5 MG, DAILY (1/D)
     Route: 048
     Dates: start: 20060101
  4. DAFALGAN [Concomitant]
     Indication: ARTHRALGIA
     Dosage: 3 G, DAILY (1/D)
     Route: 048
  5. IRFEN [Concomitant]
     Indication: ARTHRALGIA
     Dosage: 400 MG OCCASIONALLY
     Route: 065
  6. VOLTAREN /00372301/ [Concomitant]
     Indication: ARTHRALGIA
     Dosage: 50 MG OCCASIONALLY
     Route: 065

REACTIONS (1)
  - COLLAGEN DISORDER [None]
